FAERS Safety Report 9809200 (Version 3)
Quarter: 2014Q1

REPORT INFORMATION
  Report Type: Report from Study
  Country: JP (occurrence: JP)
  Receive Date: 20140110
  Receipt Date: 20140213
  Transmission Date: 20141002
  Serious: Yes (Hospitalization)
  Sender: FDA-Public Use
  Company Number: JP-BRISTOL-MYERS SQUIBB COMPANY-15835010

PATIENT
  Age: 38 Year
  Sex: Female

DRUGS (3)
  1. BARACLUDE [Suspect]
     Dosage: 18MAR-13JUN11?6-6OCT11
     Route: 048
     Dates: start: 20110318, end: 20111106
  2. ZEFIX [Suspect]
     Indication: HEPATITIS B
     Route: 048
     Dates: start: 20110614, end: 20111005
  3. URSO [Concomitant]
     Indication: LIVER DISORDER
     Route: 048
     Dates: start: 20101108, end: 20110511

REACTIONS (4)
  - Threatened labour [Recovered/Resolved]
  - Normal newborn [Unknown]
  - Pregnancy [Recovered/Resolved]
  - Ultrasound antenatal screen [Recovered/Resolved]
